FAERS Safety Report 24569284 (Version 5)
Quarter: 2024Q4

REPORT INFORMATION
  Report Type: Spontaneous
  Country: JP (occurrence: JP)
  Receive Date: 20241031
  Receipt Date: 20241203
  Transmission Date: 20250115
  Serious: Yes (Other)
  Sender: OTSUKA
  Company Number: JP-OTSUKA-2024_029095

PATIENT
  Sex: Female

DRUGS (4)
  1. ABILIFY MAINTENA [Suspect]
     Active Substance: ARIPIPRAZOLE
     Indication: Schizophrenia
     Dosage: UNK
     Route: 065
     Dates: start: 2020, end: 2024
  2. ABILIFY [Suspect]
     Active Substance: ARIPIPRAZOLE
     Indication: Schizophrenia
     Dosage: 6 MG IN THE MORNING, 6 MG AT NIGHT, 12 MG IN TOTAL
     Route: 048
  3. ABILIFY [Suspect]
     Active Substance: ARIPIPRAZOLE
     Dosage: 18 MG A DAY, 6 MG IN THE MORNING AND 12 MG IN THE EVENING
     Route: 048
     Dates: start: 20241104, end: 202411
  4. ABILIFY [Suspect]
     Active Substance: ARIPIPRAZOLE
     Dosage: 12 MG/DAY (6 MG, TWICE DAILY, IN THE MORNING AND EVENING)
     Route: 048
     Dates: start: 202411

REACTIONS (8)
  - Uterine disorder [Unknown]
  - Uterine operation [Unknown]
  - Ovarian operation [Unknown]
  - Renal impairment [Unknown]
  - Hunger [Unknown]
  - Blood pressure increased [Unknown]
  - Weight increased [Unknown]
  - Nausea [Unknown]
